FAERS Safety Report 4426531-6 (Version None)
Quarter: 2004Q3

REPORT INFORMATION
  Report Type: 
  Country: None (occurrence: None)
  Receive Date: 20040816
  Receipt Date: 20040804
  Transmission Date: 20050211
  Serious: Yes (Other)
  Sender: FDA-Public Use
  Company Number: GB-JNJFOC-20040801528

PATIENT
  Sex: Female
  Weight: 59.8 kg

DRUGS (4)
  1. TRAMADOL HYDROCHLORIDE [Suspect]
     Indication: BACK PAIN
     Route: 049
  2. ACETAMINOPHEN [Concomitant]
     Indication: HEADACHE
     Dosage: INTERMITTENTLY.
     Route: 049
  3. IBUPROFEN [Concomitant]
     Indication: HEADACHE
     Dosage: INTERMITTENTLY.
     Route: 049
  4. IMPLANON [Concomitant]

REACTIONS (2)
  - BRADYCARDIA [None]
  - ORTHOSTATIC HYPOTENSION [None]
